FAERS Safety Report 5388799-1 (Version None)
Quarter: 2007Q3

REPORT INFORMATION
  Report Type: 
  Country: None (occurrence: None)
  Receive Date: 20070712
  Receipt Date: 20070628
  Transmission Date: 20080115
  Serious: Yes (Other)
  Sender: FDA-Public Use
  Company Number: DSA_29346_2007

PATIENT
  Age: 64 Year
  Sex: Female

DRUGS (3)
  1. DILTIAZEM HYDROCHLORIDE [Suspect]
     Indication: BLOOD PRESSURE INCREASED
     Dosage: 300 MG QD ORAL
     Route: 048
     Dates: start: 20010101, end: 20060901
  2. OMEPRAZOLE [Concomitant]
  3. ESTRADIOL [Concomitant]

REACTIONS (12)
  - ACNE [None]
  - DRUG ERUPTION [None]
  - EMOTIONAL DISTRESS [None]
  - HAEMORRHAGE [None]
  - NO THERAPEUTIC RESPONSE [None]
  - PAIN [None]
  - PHARMACEUTICAL PRODUCT COMPLAINT [None]
  - PILOERECTION [None]
  - POST INFLAMMATORY PIGMENTATION CHANGE [None]
  - SKIN DISCOLOURATION [None]
  - SKIN HYPERPIGMENTATION [None]
  - SKIN HYPOPIGMENTATION [None]
